FAERS Safety Report 7669688-6 (Version None)
Quarter: 2011Q3

REPORT INFORMATION
  Report Type: 
  Country: None (occurrence: None)
  Receive Date: 20110808
  Receipt Date: 20110726
  Transmission Date: 20111222
  Serious: Yes (Hospitalization)
  Sender: FDA-Public Use
  Company Number: GB-ELI_LILLY_AND_COMPANY-GB201107007319

PATIENT
  Sex: Female
  Weight: 74 kg

DRUGS (1)
  1. GEMCITABINE HYDROCHLORIDE [Suspect]
     Indication: DIFFUSE LARGE B-CELL LYMPHOMA
     Dosage: 2.1 G, UNK
     Route: 065
     Dates: start: 20110418, end: 20110418

REACTIONS (3)
  - NEUTROPENIA [None]
  - SKIN INFECTION [None]
  - THROMBOCYTOPENIA [None]
